FAERS Safety Report 5972721-0 (Version None)
Quarter: 2008Q4

REPORT INFORMATION
  Report Type: 
  Country: None (occurrence: None)
  Receive Date: 20081125
  Receipt Date: 20081111
  Transmission Date: 20090506
  Serious: Yes (Hospitalization)
  Sender: FDA-Public Use
  Company Number: GXKR2008CA08957

PATIENT
  Age: 79 Year
  Sex: Male
  Weight: 61 kg

DRUGS (21)
  1. NITROGLYCERIN [Suspect]
     Indication: BLOOD PRESSURE INCREASED
     Dosage: 560 MG TOTAL, INTRAVENOUS
     Route: 042
     Dates: start: 20080825, end: 20080825
  2. PHENYLEPHRINE HCL INJ USP (NGX) (PHENYLEPHRINE) UNKNONW [Suspect]
     Indication: HYPOTENSION
     Dosage: 560 MG TOTAL, INTRAVENOUS
     Route: 042
     Dates: start: 20080825, end: 20080825
  3. PROTAMINE SULFATE [Suspect]
     Indication: HEPARIN NEUTRALISATION THERAPY
     Dosage: 400 MG, INTRAVENOUS
     Route: 042
     Dates: start: 20080825, end: 20080825
  4. PROTAMINE SULFATE [Suspect]
  5. PROTAMINE SULFATE [Suspect]
  6. TRANEXAMIC ACID INJ BP (NGX) (TRANEXAMIC ACID) UNKNOWN [Suspect]
     Indication: HAEMORRHAGE PROPHYLAXIS
     Dosage: 8 G, INTRAVENOUS
     Route: 042
     Dates: start: 20080825, end: 20080825
  7. TRANEXAMIC ACID INJ BP (NGX) (TRANEXAMIC ACID) UNKNOWN [Suspect]
  8. MAGNESIUM SULFATE [Suspect]
     Indication: ELECTROLYTE SUBSTITUTION THERAPY
     Dosage: 5 G, INTRAVENOUS
     Route: 042
     Dates: start: 20080825, end: 20080825
  9. MAGNESIUM SULFATE [Suspect]
  10. HEPARIN [Suspect]
     Indication: ANTICOAGULANT THERAPY
     Dosage: 35000 IU/DAY, INTRAVENOUS
     Route: 042
  11. BACITRACIN [Concomitant]
  12. FENTANYL-100 [Concomitant]
  13. MANNITOL [Concomitant]
  14. VOLUVEN (HETASTARCH) [Concomitant]
  15. PANCURON (PANCURONIUM BROMIDE) [Concomitant]
  16. MIDAZOLAM HCL [Concomitant]
  17. ROCURONIUM BROMIDE [Concomitant]
  18. CALCIUM CHLORIDE [Concomitant]
  19. MORPHINE [Concomitant]
  20. SEVOFLURANE [Concomitant]
  21. CEFAZOLAN(CEFAZOLAN) [Concomitant]

REACTIONS (1)
  - GRAND MAL CONVULSION [None]
